FAERS Safety Report 15249806 (Version 1)
Quarter: 2018Q3

REPORT INFORMATION
  Report Type: Spontaneous
  Country: US (occurrence: US)
  Receive Date: 20180716
  Receipt Date: 20180716
  Transmission Date: 20181010
  Serious: No
  Sender: FDA-Public Use
  Company Number: None

PATIENT
  Age: 58 Year
  Sex: Male

DRUGS (1)
  1. ENOXAPARIN [Suspect]
     Active Substance: ENOXAPARIN
     Dates: start: 20171027, end: 20180716

REACTIONS (2)
  - Therapy cessation [None]
  - Haemorrhage urinary tract [None]

NARRATIVE: CASE EVENT DATE: 20180716
